FAERS Safety Report 15671675 (Version 1)
Quarter: 2018Q4

REPORT INFORMATION
  Report Type: Report from Study
  Country: US (occurrence: US)
  Receive Date: 20181129
  Receipt Date: 20181129
  Transmission Date: 20190205
  Serious: No
  Sender: FDA-Public Use
  Company Number: US-TESARO-2018-TSO0748-US

PATIENT
  Age: 79 Year
  Sex: Female

DRUGS (1)
  1. ZEJULA [Suspect]
     Active Substance: NIRAPARIB
     Indication: OVARIAN CANCER
     Dosage: 300 MG, QD
     Route: 048
     Dates: start: 20180919, end: 20181002

REACTIONS (12)
  - Feeling abnormal [Unknown]
  - Dyspnoea [Unknown]
  - Palpitations [Unknown]
  - Somnolence [Not Recovered/Not Resolved]
  - Lacrimation increased [Unknown]
  - Constipation [Unknown]
  - Secretion discharge [Unknown]
  - Fatigue [Not Recovered/Not Resolved]
  - Dizziness [Not Recovered/Not Resolved]
  - Asthenia [Unknown]
  - Malaise [Unknown]
  - Lethargy [Unknown]

NARRATIVE: CASE EVENT DATE: 201809
